FAERS Safety Report 16164099 (Version 2)
Quarter: 2019Q2

REPORT INFORMATION
  Report Type: Spontaneous
  Country: US (occurrence: US)
  Receive Date: 20190405
  Receipt Date: 20190507
  Transmission Date: 20190711
  Serious: Yes (Other)
  Sender: FDA-Public Use
  Company Number: US-SA-2019SA091951

PATIENT
  Age: 58 Year
  Sex: Female

DRUGS (9)
  1. TAXOTERE [Suspect]
     Active Substance: DOCETAXEL
     Indication: BREAST CANCER
     Dosage: 140 MG, QCY
     Route: 042
     Dates: start: 20150723, end: 20150723
  2. CARBOPLATIN. [Concomitant]
     Active Substance: CARBOPLATIN
     Dosage: 650 MG, QD
     Route: 042
     Dates: start: 20150723, end: 20150723
  3. TAXOTERE [Suspect]
     Active Substance: DOCETAXEL
     Dosage: 140 MG, QCY
     Route: 042
     Dates: start: 20150813, end: 20150813
  4. NEULASTA [Concomitant]
     Active Substance: PEGFILGRASTIM
     Dosage: 6 MG, QD
     Route: 058
     Dates: start: 20150723, end: 20150723
  5. DIPHENHYDRAMINE HCL [Concomitant]
     Active Substance: DIPHENHYDRAMINE HYDROCHLORIDE
     Dosage: 25 MG, QD
     Route: 042
     Dates: start: 20150723, end: 20150723
  6. TRASTUZUMAB. [Concomitant]
     Active Substance: TRASTUZUMAB
     Dosage: 550 MG, QD
     Route: 042
     Dates: start: 20150723, end: 20150723
  7. TAXOTERE [Suspect]
     Active Substance: DOCETAXEL
     Dosage: 140 MG, QCY
     Route: 042
     Dates: start: 20151006, end: 20151006
  8. PALONOSETRON HCL [Concomitant]
     Active Substance: PALONOSETRON HYDROCHLORIDE
     Dosage: 0.25 MG, QD
     Route: 042
     Dates: start: 20150723, end: 20150723
  9. TAXOTERE [Suspect]
     Active Substance: DOCETAXEL
     Dosage: 140 MG, QCY
     Route: 042
     Dates: start: 20151027, end: 20151027

REACTIONS (1)
  - Alopecia [Not Recovered/Not Resolved]

NARRATIVE: CASE EVENT DATE: 201510
